FAERS Safety Report 24796449 (Version 1)
Quarter: 2025Q1

REPORT INFORMATION
  Report Type: Spontaneous
  Country: FR (occurrence: FR)
  Receive Date: 20250101
  Receipt Date: 20250101
  Transmission Date: 20250409
  Serious: Yes (Hospitalization, Other)
  Sender: SANOFI AVENTIS
  Company Number: None

PATIENT
  Age: 48 Year
  Sex: Female

DRUGS (9)
  1. TRAMADOL HYDROCHLORIDE [Suspect]
     Active Substance: TRAMADOL HYDROCHLORIDE
     Dosage: 750 MG, QD
     Route: 048
     Dates: start: 2022, end: 2023
  2. TRAMADOL HYDROCHLORIDE [Suspect]
     Active Substance: TRAMADOL HYDROCHLORIDE
     Dosage: 500 MG, QD
     Route: 048
     Dates: start: 2023, end: 2024
  3. TRAMADOL HYDROCHLORIDE [Suspect]
     Active Substance: TRAMADOL HYDROCHLORIDE
     Dosage: 400 MG, QD
     Route: 048
     Dates: start: 2024
  4. FENTANYL [Suspect]
     Active Substance: FENTANYL
     Dosage: 50 UG, QD
     Route: 062
     Dates: start: 2024, end: 20240719
  5. FENTANYL [Suspect]
     Active Substance: FENTANYL
     Dosage: 25 UG, QD
     Route: 062
     Dates: start: 20240719, end: 202409
  6. ZOLPIDEM TARTRATE [Suspect]
     Active Substance: ZOLPIDEM TARTRATE
     Dosage: 10 MG, QD
     Route: 048
     Dates: start: 2023, end: 2024
  7. ZOLPIDEM TARTRATE [Suspect]
     Active Substance: ZOLPIDEM TARTRATE
     Dosage: 35 MG, QD
     Route: 048
     Dates: start: 2024
  8. OXYCODONE HYDROCHLORIDE [Suspect]
     Active Substance: OXYCODONE HYDROCHLORIDE
     Dates: start: 2023, end: 20240719
  9. MORPHINE SULFATE [Suspect]
     Active Substance: MORPHINE SULFATE
     Route: 048
     Dates: start: 2023, end: 2024

REACTIONS (1)
  - Drug use disorder [Not Recovered/Not Resolved]

NARRATIVE: CASE EVENT DATE: 20240101
